FAERS Safety Report 12645592 (Version 5)
Quarter: 2017Q4

REPORT INFORMATION
  Report Type: Spontaneous
  Country: DK (occurrence: DK)
  Receive Date: 20160811
  Receipt Date: 20171108
  Transmission Date: 20180320
  Serious: Yes (Hospitalization, Other)
  Sender: FDA-Public Use
  Company Number: DK-SA-2016SA118589

PATIENT
  Age: 22 Year
  Sex: Female
  Weight: 69.3 kg

DRUGS (9)
  1. LANTUS [Suspect]
     Active Substance: INSULIN GLARGINE
     Indication: TYPE 1 DIABETES MELLITUS
     Dosage: 39 IU, QD
     Route: 058
     Dates: start: 20151207
  2. LANTUS [Suspect]
     Active Substance: INSULIN GLARGINE
     Indication: TYPE 1 DIABETES MELLITUS
     Route: 058
  3. METHYLPHENIDATE. [Concomitant]
     Active Substance: METHYLPHENIDATE
     Indication: MENTAL DISORDER
     Dates: start: 20160731
  4. NOVORAPID [Suspect]
     Active Substance: INSULIN ASPART
     Indication: TYPE 1 DIABETES MELLITUS
     Dosage: 12 IU, QD
     Route: 058
     Dates: start: 2006
  5. GRAVITAMIN [Concomitant]
     Route: 065
     Dates: start: 201601
  6. FOLIC ACID. [Concomitant]
     Active Substance: FOLIC ACID
     Route: 065
     Dates: start: 201601
  7. METHYLPHENIDATE. [Concomitant]
     Active Substance: METHYLPHENIDATE
     Indication: ATTENTION DEFICIT/HYPERACTIVITY DISORDER
     Dates: start: 20160731
  8. LANTUS [Suspect]
     Active Substance: INSULIN GLARGINE
     Indication: TYPE 1 DIABETES MELLITUS
     Dosage: 27 IU, QD
     Route: 058
  9. NOVORAPID [Suspect]
     Active Substance: INSULIN ASPART
     Indication: TYPE 1 DIABETES MELLITUS
     Dosage: UNK
     Route: 058

REACTIONS (7)
  - Erysipelas [Recovered/Resolved]
  - Vomiting [Recovered/Resolved]
  - Pre-eclampsia [Recovered/Resolved]
  - Diabetes mellitus inadequate control [Recovered/Resolved]
  - Diabetes mellitus inadequate control [Recovered/Resolved]
  - Exposure during pregnancy [Unknown]
  - Malaise [Unknown]

NARRATIVE: CASE EVENT DATE: 20151220
